FAERS Safety Report 8329236 (Version 5)
Quarter: 2013Q1

REPORT INFORMATION
  Report Type: Spontaneous
  Country: US (occurrence: US)
  Receive Date: 20120110
  Receipt Date: 20130329
  Transmission Date: 20140127
  Serious: Yes (Other)
  Sender: FDA-Public Use
  Company Number: US-PFIZER INC-2012003675

PATIENT
  Age: 48 Year
  Sex: Female

DRUGS (7)
  1. EFFEXOR XR [Suspect]
     Dosage: UNK
  2. LYRICA [Suspect]
     Dosage: 100 MG, 2X/DAY
     Route: 048
  3. LYRICA [Suspect]
     Dosage: 200 MG, 2X/DAY
     Route: 048
  4. LORTAB [Concomitant]
     Dosage: HYDROCODONE BITARTRATE 7.5 MG/ PARACETAMOL 500 MG, UNK
  5. ZANAFLEX [Concomitant]
     Dosage: 4 MG, UNK
  6. ELAVIL [Concomitant]
     Dosage: 150 MG, UNK
  7. CYANOCOBALAMIN [Concomitant]
     Dosage: 1000 UG, UNK

REACTIONS (2)
  - Local swelling [Unknown]
  - Malaise [Unknown]
